FAERS Safety Report 23451825 (Version 2)
Quarter: 2024Q1

REPORT INFORMATION
  Report Type: Spontaneous
  Country: US (occurrence: US)
  Receive Date: 20240129
  Receipt Date: 20240312
  Transmission Date: 20240410
  Serious: No
  Sender: FDA-Public Use
  Company Number: US-SA-SAC20240124001271

PATIENT
  Sex: Female

DRUGS (1)
  1. DUPIXENT [Suspect]
     Active Substance: DUPILUMAB
     Indication: Dermatitis atopic
     Dosage: 300 MG, QOW
     Route: 058
     Dates: start: 202310, end: 202401

REACTIONS (9)
  - Skin haemorrhage [Unknown]
  - Eyelid margin crusting [Unknown]
  - Dry skin [Unknown]
  - Eyelid skin dryness [Not Recovered/Not Resolved]
  - Visual impairment [Unknown]
  - Dry eye [Unknown]
  - Blepharitis [Unknown]
  - Condition aggravated [Unknown]
  - Conjunctivitis [Unknown]
